FAERS Safety Report 23666993 (Version 2)
Quarter: 2024Q2

REPORT INFORMATION
  Report Type: Spontaneous
  Country: US (occurrence: US)
  Receive Date: 20240325
  Receipt Date: 20240418
  Transmission Date: 20240715
  Serious: Yes (Hospitalization)
  Sender: FDA-Public Use
  Company Number: US-NOVOPROD-1190449

PATIENT
  Sex: Female
  Weight: 150 kg

DRUGS (1)
  1. NOVOLIN 70/30 [Suspect]
     Active Substance: INSULIN HUMAN
     Indication: Diabetes mellitus
     Dosage: 25 UNITS IN MORNING , 30 UNITS IN EVENING
     Route: 058

REACTIONS (8)
  - COVID-19 [Recovered/Resolved]
  - Confusional state [Recovered/Resolved]
  - Hallucination [Recovered/Resolved]
  - Injection site discolouration [Recovered/Resolved]
  - Skin odour abnormal [Recovered/Resolved]
  - Blood glucose increased [Unknown]
  - Memory impairment [Unknown]
  - Weight increased [Unknown]
